FAERS Safety Report 7501711-1 (Version None)
Quarter: 2011Q2

REPORT INFORMATION
  Report Type: 
  Country: None (occurrence: None)
  Receive Date: 20110525
  Receipt Date: 20110517
  Transmission Date: 20111010
  Serious: Yes (Hospitalization)
  Sender: FDA-Public Use
  Company Number: FR-BIOGENIDEC-2011BI010688

PATIENT
  Age: 36 Year
  Sex: Female

DRUGS (10)
  1. EFFEXOR [Concomitant]
     Indication: ANXIETY
  2. SULFARLEM [Concomitant]
     Indication: DRY MOUTH
  3. TYSABRI [Suspect]
     Indication: MULTIPLE SCLEROSIS
     Route: 042
     Dates: start: 20080222, end: 20101223
  4. ZOMIG [Concomitant]
     Indication: HEADACHE
  5. LEXOMIL [Concomitant]
     Indication: ANXIETY
  6. BACLOFEN [Concomitant]
     Indication: MUSCLE SPASTICITY
  7. AMANTADINE HCL [Concomitant]
     Indication: ASTHENIA
  8. GABAPENTIN [Concomitant]
     Indication: PAIN
  9. CLONAZEPAM [Concomitant]
     Indication: PAIN
  10. VASTAREL [Concomitant]
     Indication: DIZZINESS

REACTIONS (1)
  - MALIGNANT MELANOMA [None]
